FAERS Safety Report 6252014-7 (Version None)
Quarter: 2009Q2

REPORT INFORMATION
  Report Type: 
  Country: None (occurrence: None)
  Receive Date: 20090630
  Receipt Date: 20041124
  Transmission Date: 20091009
  Serious: Yes (Death, Hospitalization)
  Sender: FDA-Public Use
  Company Number: US-ROCHE-638464

PATIENT
  Sex: Male

DRUGS (26)
  1. ENFUVIRTIDE [Suspect]
     Route: 065
     Dates: start: 20040527, end: 20050801
  2. VIREAD [Concomitant]
     Indication: ANTIRETROVIRAL THERAPY
     Dates: start: 20020212, end: 20050801
  3. ZIAGEN [Concomitant]
     Indication: ANTIRETROVIRAL THERAPY
     Dates: start: 20020610, end: 20050801
  4. EPIVIR [Concomitant]
     Indication: ANTIRETROVIRAL THERAPY
     Dates: start: 20040524, end: 20050801
  5. LEXIVA [Concomitant]
     Indication: ANTIRETROVIRAL THERAPY
     Dates: start: 20040524, end: 20050801
  6. NORVIR [Concomitant]
     Indication: ANTIRETROVIRAL THERAPY
     Dates: start: 20040524, end: 20050801
  7. NORVIR [Concomitant]
     Dates: start: 20051003, end: 20060515
  8. REYATAZ [Concomitant]
     Indication: ANTIRETROVIRAL THERAPY
     Dates: start: 20051003, end: 20060515
  9. TRUVADA [Concomitant]
     Indication: ANTIRETROVIRAL THERAPY
     Dates: start: 20051003, end: 20060515
  10. ZITHROMAX [Concomitant]
     Indication: ANTIBIOTIC THERAPY
     Dates: start: 20020410, end: 20060101
  11. SPORANOX [Concomitant]
     Indication: ANTIBIOTIC THERAPY
     Dosage: DOSE: 10 MG/ML, FREQUENCY: 5CC TID.
     Dates: start: 20040513, end: 20060515
  12. CLOTRIMAZOLE [Concomitant]
     Indication: ANTIBIOTIC THERAPY
     Dates: start: 20040611, end: 20040621
  13. DIFLUCAN [Concomitant]
     Indication: ANTIBIOTIC THERAPY
     Dates: start: 20041108, end: 20041122
  14. DIFLUCAN [Concomitant]
     Dates: start: 20050504, end: 20060101
  15. DIFLUCAN [Concomitant]
     Dosage: STOP DATE: 2005.
     Dates: start: 20050801
  16. DIFLUCAN [Concomitant]
     Dates: start: 20060109, end: 20060515
  17. CIPRO [Concomitant]
     Indication: ANTIBIOTIC THERAPY
     Dates: start: 20050127, end: 20050201
  18. CIPRO [Concomitant]
     Dates: start: 20050526, end: 20050529
  19. CIPRO [Concomitant]
     Dates: start: 20050601, end: 20050610
  20. CIPRO [Concomitant]
     Dosage: STOP DATE: 2005.
     Dates: start: 20050721
  21. CIPRO [Concomitant]
     Dates: start: 20060126, end: 20060226
  22. KEFLEX [Concomitant]
     Dates: start: 20050613, end: 20050704
  23. NYSTATIN [Concomitant]
     Dosage: STOP DATE: 2005.
     Dates: start: 20050818
  24. CEFTRIAXONE [Concomitant]
     Dosage: STOP DATE: 2005.
     Dates: start: 20050801
  25. VANCOMYCIN [Concomitant]
     Dosage: STOP DATE: 2005.
     Dates: start: 20050801
  26. MYCOSTATIN ORAL SUSPENSION [Concomitant]
     Indication: ANTIBIOTIC THERAPY
     Dosage: DOSE: 10 CC.
     Route: 048
     Dates: start: 20060109, end: 20060401

REACTIONS (11)
  - AIDS RELATED COMPLICATION [None]
  - ANAEMIA [None]
  - DEATH [None]
  - DIARRHOEA [None]
  - END STAGE AIDS [None]
  - GASTRITIS [None]
  - NEUTROPENIA [None]
  - OESOPHAGEAL CANDIDIASIS [None]
  - ORAL CANDIDIASIS [None]
  - OSTEOMYELITIS [None]
  - URINARY TRACT INFECTION [None]
